FAERS Safety Report 15329924 (Version 1)
Quarter: 2018Q3

REPORT INFORMATION
  Report Type: Spontaneous
  Country: US (occurrence: US)
  Receive Date: 20180829
  Receipt Date: 20180829
  Transmission Date: 20181010
  Serious: Yes (Other)
  Sender: FDA-Public Use
  Company Number: US-BAYER-2018-161115

PATIENT

DRUGS (1)
  1. MAGNEVIST [Suspect]
     Active Substance: GADOPENTETATE DIMEGLUMINE
     Indication: NUCLEAR MAGNETIC RESONANCE IMAGING
     Dosage: UNK

REACTIONS (28)
  - Contrast media deposition [None]
  - Swelling [None]
  - Skin fibrosis [None]
  - Rash macular [None]
  - Musculoskeletal stiffness [None]
  - Paraesthesia [None]
  - Muscle spasms [None]
  - Joint noise [None]
  - Cognitive disorder [None]
  - Pain [None]
  - Nausea [None]
  - Vomiting [None]
  - Injury [None]
  - Fibrosis [None]
  - Mobility decreased [None]
  - Skin tightness [None]
  - Thrombophlebitis [None]
  - Anxiety [None]
  - Skin exfoliation [None]
  - Burning sensation [None]
  - Insomnia [None]
  - Malaise [None]
  - Erythema [None]
  - Skin discolouration [None]
  - Asthenia [None]
  - Myelofibrosis [None]
  - Gait disturbance [None]
  - Headache [None]
